FAERS Safety Report 9870990 (Version 5)
Quarter: 2015Q3

REPORT INFORMATION
  Report Type: Report from Study
  Country: DE (occurrence: DE)
  Receive Date: 20140205
  Receipt Date: 20150909
  Transmission Date: 20151125
  Serious: Yes (Death, Hospitalization, Other)
  Sender: FDA-Public Use
  Company Number: DE-ROCHE-1326648

PATIENT
  Age: 70 Year
  Sex: Male
  Weight: 78 kg

DRUGS (6)
  1. BEVACIZUMAB [Suspect]
     Active Substance: BEVACIZUMAB
     Indication: LUNG ADENOCARCINOMA
     Route: 042
     Dates: start: 20131031, end: 20131031
  2. GEMCITABINE [Suspect]
     Active Substance: GEMCITABINE\GEMCITABINE HYDROCHLORIDE
     Route: 065
     Dates: start: 20131128
  3. GEMCITABINE [Suspect]
     Active Substance: GEMCITABINE\GEMCITABINE HYDROCHLORIDE
     Indication: LUNG ADENOCARCINOMA
     Route: 042
     Dates: start: 20131031, end: 20131128
  4. CARBOPLATIN. [Suspect]
     Active Substance: CARBOPLATIN
     Indication: LUNG ADENOCARCINOMA
     Route: 042
     Dates: start: 20131031, end: 20131128
  5. CARBOPLATIN. [Suspect]
     Active Substance: CARBOPLATIN
     Route: 065
     Dates: start: 20131128
  6. BEVACIZUMAB [Suspect]
     Active Substance: BEVACIZUMAB
     Route: 065
     Dates: start: 20131128, end: 20131128

REACTIONS (7)
  - Myocardial infarction [Not Recovered/Not Resolved]
  - Fatigue [Not Recovered/Not Resolved]
  - Pneumonia [Fatal]
  - Thrombocytopenia [Recovered/Resolved]
  - Leukopenia [Recovered/Resolved]
  - Malignant neoplasm progression [Fatal]
  - Anaemia [Recovered/Resolved]

NARRATIVE: CASE EVENT DATE: 20131113
